FAERS Safety Report 15151442 (Version 4)
Quarter: 2018Q4

REPORT INFORMATION
  Report Type: Not Available
  Country: US (occurrence: US)
  Receive Date: 20180716
  Receipt Date: 20181003
  Transmission Date: 20190204
  Serious: Yes (Hospitalization)
  Sender: FDA-Public Use
  Company Number: US-NEUROCRINE BIOSCIENCES INC.-2018NBI02092

PATIENT
  Age: 57 Year
  Sex: Female

DRUGS (29)
  1. ALLEGRA [Concomitant]
     Active Substance: FEXOFENADINE HYDROCHLORIDE
  2. MIRALAX [Concomitant]
     Active Substance: POLYETHYLENE GLYCOL 3350
  3. VALPROIC ACID. [Concomitant]
     Active Substance: VALPROIC ACID
  4. ACIDOPHILUS [Concomitant]
     Active Substance: LACTOBACILLUS ACIDOPHILUS
  5. DEPAKOTE [Suspect]
     Active Substance: DIVALPROEX SODIUM
     Indication: MANIA
  6. DEPAKOTE [Suspect]
     Active Substance: DIVALPROEX SODIUM
     Dosage: DOSE INCREASED
  7. ESTRADIOL. [Concomitant]
     Active Substance: ESTRADIOL
  8. OMEGA 3 [Concomitant]
     Active Substance: OMEGA-3 FATTY ACIDS
  9. PROBIOTIC [Concomitant]
     Active Substance: PROBIOTICS NOS
  10. TYLENOL [Concomitant]
     Active Substance: ACETAMINOPHEN
  11. INGREZZA [Suspect]
     Active Substance: VALBENAZINE
     Indication: TARDIVE DYSKINESIA
     Route: 048
     Dates: start: 20170912, end: 20170918
  12. CORTISONE ACETATE. [Concomitant]
     Active Substance: CORTISONE ACETATE
  13. LYRICA [Concomitant]
     Active Substance: PREGABALIN
  14. VITAMIN D [Concomitant]
     Active Substance: CHOLECALCIFEROL
  15. VITAMIN E [Concomitant]
     Active Substance: .ALPHA.-TOCOPHEROL
  16. ZYPREXA [Suspect]
     Active Substance: OLANZAPINE
     Indication: PRODUCT USED FOR UNKNOWN INDICATION
  17. RISPERIDONE. [Concomitant]
     Active Substance: RISPERIDONE
  18. RISPERDAL [Suspect]
     Active Substance: RISPERIDONE
     Indication: PRODUCT USED FOR UNKNOWN INDICATION
  19. AMILORIDE [Concomitant]
     Active Substance: AMILORIDE
  20. MULTIVITAL [Concomitant]
  21. DIVALPROEX [Concomitant]
     Active Substance: DIVALPROEX SODIUM
  22. PROPRANOLOL [Concomitant]
     Active Substance: PROPRANOLOL HYDROCHLORIDE
  23. KRILL OIL [Concomitant]
     Active Substance: DIETARY SUPPLEMENT
  24. INGREZZA [Suspect]
     Active Substance: VALBENAZINE
     Dosage: TOOK IT OFF AND ON
     Route: 048
     Dates: start: 201711, end: 20180720
  25. LITHIUM. [Suspect]
     Active Substance: LITHIUM
     Indication: PRODUCT USED FOR UNKNOWN INDICATION
     Dates: end: 20180607
  26. INDERAL LA [Concomitant]
     Active Substance: PROPRANOLOL HYDROCHLORIDE
  27. MAGNESIUM [Concomitant]
     Active Substance: MAGNESIUM
  28. BENZOTROPINE [Concomitant]
     Active Substance: BENZTROPINE
  29. IRON [Concomitant]
     Active Substance: IRON

REACTIONS (14)
  - Acne [Recovered/Resolved]
  - Abdominal distension [Recovering/Resolving]
  - Blood creatinine increased [Not Recovered/Not Resolved]
  - Drooling [Recovered/Resolved]
  - Renal disorder [Not Recovered/Not Resolved]
  - Intervertebral disc protrusion [Recovered/Resolved]
  - Treatment noncompliance [Unknown]
  - Dyskinesia [Not Recovered/Not Resolved]
  - Joint stiffness [Not Recovered/Not Resolved]
  - Weight increased [Recovered/Resolved]
  - Mania [Recovered/Resolved]
  - Blood calcium increased [Not Recovered/Not Resolved]
  - Blood urea increased [Not Recovered/Not Resolved]
  - Muscle rigidity [Not Recovered/Not Resolved]

NARRATIVE: CASE EVENT DATE: 201711
